APPROVED DRUG PRODUCT: METRONIDAZOLE
Active Ingredient: METRONIDAZOLE
Strength: 500MG
Dosage Form/Route: TABLET;ORAL
Application: A070593 | Product #001
Applicant: HALSEY DRUG CO INC
Approved: Feb 27, 1986 | RLD: No | RS: No | Type: DISCN